FAERS Safety Report 6517036-7 (Version None)
Quarter: 2009Q4

REPORT INFORMATION
  Report Type: 
  Country: None (occurrence: None)
  Receive Date: 20091223
  Receipt Date: 20091214
  Transmission Date: 20100525
  Serious: Yes (Life-Threatening, Hospitalization, Other)
  Sender: FDA-Public Use
  Company Number: RU-NOVOPROD-300055

PATIENT
  Sex: Female
  Weight: 48 kg

DRUGS (3)
  1. NOVOMIX 30 FLEXPEN [Suspect]
     Indication: TYPE 2 DIABETES MELLITUS
     Dosage: 24 UNK, QD
     Route: 058
     Dates: start: 20090701, end: 20091027
  2. NOVOMIX 30 FLEXPEN [Suspect]
     Dosage: 20 IU, QD
     Dates: start: 20091116
  3. HUMULIN R [Suspect]

REACTIONS (3)
  - HYPOGLYCAEMIC COMA [None]
  - INTENTIONAL OVERDOSE [None]
  - SUICIDE ATTEMPT [None]
